FAERS Safety Report 7255243-9 (Version None)
Quarter: 2011Q1

REPORT INFORMATION
  Report Type: 
  Country: None (occurrence: None)
  Receive Date: 20110129
  Receipt Date: 20100320
  Transmission Date: 20110831
  Serious: No
  Sender: FDA-Public Use
  Company Number: US-ABBOTT-10P-163-0634603-00

PATIENT
  Sex: Female

DRUGS (3)
  1. HUMIRA [Suspect]
     Indication: CROHN'S DISEASE
  2. NEURONTIN [Concomitant]
     Indication: FIBROMYALGIA
  3. BENDRYL [Concomitant]
     Indication: PREMEDICATION

REACTIONS (9)
  - PYREXIA [None]
  - UPPER-AIRWAY COUGH SYNDROME [None]
  - OROPHARYNGEAL PAIN [None]
  - INJECTION SITE ERYTHEMA [None]
  - VISUAL IMPAIRMENT [None]
  - INJECTION SITE SWELLING [None]
  - ONYCHOMYCOSIS [None]
  - PARAESTHESIA [None]
  - RETINAL HAEMORRHAGE [None]
